FAERS Safety Report 25407431 (Version 1)
Quarter: 2025Q2

REPORT INFORMATION
  Report Type: Spontaneous
  Country: US (occurrence: None)
  Receive Date: 20250605
  Receipt Date: 20250605
  Transmission Date: 20250717
  Serious: No
  Sender: FDA-CTU
  Company Number: None

PATIENT
  Age: 47 Year
  Sex: Female
  Weight: 63 kg

DRUGS (12)
  1. ESTRADIOL [Suspect]
     Active Substance: ESTRADIOL
     Dosage: OTHER QUANTITY : 1 2 GRAM DOSAGE;?FREQUENCY : DAILY;?
     Route: 067
     Dates: start: 20250523, end: 20250531
  2. SERTRALINE [Concomitant]
     Active Substance: SERTRALINE HYDROCHLORIDE
  3. AMBIEN [Concomitant]
     Active Substance: ZOLPIDEM TARTRATE
  4. ALLEGRA [Concomitant]
     Active Substance: FEXOFENADINE HYDROCHLORIDE
  5. FLONASE [Concomitant]
     Active Substance: FLUTICASONE PROPIONATE
  6. AZELASTINE [Concomitant]
     Active Substance: AZELASTINE
  7. PROPRANOLOL [Concomitant]
     Active Substance: PROPRANOLOL HYDROCHLORIDE
  8. VITAMIN B COMPLEX [Concomitant]
     Active Substance: CYANOCOBALAMIN\DEXPANTHENOL\NIACINAMIDE\PYRIDOXINE HYDROCHLORIDE\RIBOFLAVIN 5^-PHOSPHATE SODIUM\THIA
  9. DIETARY SUPPLEMENT [Concomitant]
     Active Substance: DIETARY SUPPLEMENT
  10. l-methyl folate [Concomitant]
  11. VITAMINS [Concomitant]
     Active Substance: VITAMINS
  12. perimenopause supplement [Concomitant]

REACTIONS (6)
  - Adverse drug reaction [None]
  - Application site pain [None]
  - Application site inflammation [None]
  - Abdominal pain [None]
  - Discomfort [None]
  - Vulvovaginal burning sensation [None]

NARRATIVE: CASE EVENT DATE: 20250601
